FAERS Safety Report 9425378 (Version 1)
Quarter: 2013Q3

REPORT INFORMATION
  Report Type: Spontaneous
  Country: FR (occurrence: FR)
  Receive Date: 20130724
  Receipt Date: 20130724
  Transmission Date: 20140515
  Serious: No
  Sender: FDA-Public Use
  Company Number: AXC-2013-000323

PATIENT
  Age: 53 Year
  Sex: Female

DRUGS (2)
  1. PYLERA [Suspect]
     Indication: PRODUCT USED FOR UNKNOWN INDICATION
     Route: 048
     Dates: start: 20130513, end: 20130521
  2. OMEPRAZOLE (OMEPRAZOLE) [Suspect]
     Route: 048
     Dates: start: 20130513, end: 20130522

REACTIONS (6)
  - Headache [None]
  - Vision blurred [None]
  - Reading disorder [None]
  - Gait disturbance [None]
  - Feeling drunk [None]
  - Impaired driving ability [None]
